FAERS Safety Report 9493419 (Version 2)
Quarter: 2013Q3

REPORT INFORMATION
  Report Type: Spontaneous
  Country: JP (occurrence: JP)
  Receive Date: 20130902
  Receipt Date: 20130905
  Transmission Date: 20140515
  Serious: No
  Sender: FDA-Public Use
  Company Number: JP-PFIZER INC-2013251112

PATIENT
  Age: 68 Year
  Sex: Male

DRUGS (2)
  1. NORVASC [Suspect]
     Indication: HYPERTENSION
     Dosage: 5 MG, 1X/DAY
     Route: 048
  2. BLOPRESS [Suspect]
     Indication: HYPERTENSION
     Dosage: 8 MG DAILY
     Route: 048

REACTIONS (1)
  - Emphysema [Unknown]
